FAERS Safety Report 15608240 (Version 4)
Quarter: 2023Q2

REPORT INFORMATION
  Report Type: Spontaneous
  Country: US (occurrence: US)
  Receive Date: 20181112
  Receipt Date: 20230615
  Transmission Date: 20230722
  Serious: No
  Sender: FDA-Public Use
  Company Number: US-PFIZER INC-2018461298

PATIENT
  Age: 60 Year
  Sex: Female

DRUGS (1)
  1. XELJANZ XR [Suspect]
     Active Substance: TOFACITINIB CITRATE
     Indication: Rheumatoid arthritis
     Dosage: 11 MG, DAILY
     Route: 048
     Dates: start: 201809

REACTIONS (8)
  - Dyspnoea [Unknown]
  - Pustule [Unknown]
  - Impaired healing [Unknown]
  - Peripheral swelling [Unknown]
  - Therapeutic response unexpected [Unknown]
  - Vertigo [Unknown]
  - Fatigue [Unknown]
  - Drug ineffective [Unknown]
